FAERS Safety Report 6658380-2 (Version None)
Quarter: 2010Q1

REPORT INFORMATION
  Report Type: 
  Country: None (occurrence: None)
  Receive Date: 20100330
  Receipt Date: 20100311
  Transmission Date: 20100710
  Serious: Yes (Hospitalization)
  Sender: FDA-Public Use
  Company Number: US-BIOGENIDEC-2010BI007164

PATIENT
  Age: 55 Year
  Sex: Female

DRUGS (6)
  1. TYSABRI [Suspect]
     Indication: MULTIPLE SCLEROSIS
     Route: 042
     Dates: start: 20070727
  2. ESTRADIOL [Concomitant]
     Route: 048
  3. AMITRIPTYLINE [Concomitant]
     Route: 048
  4. REMERON [Concomitant]
     Route: 048
  5. PROVERA [Concomitant]
     Route: 048
  6. ZANAFLEX [Concomitant]
     Route: 048

REACTIONS (2)
  - FALL [None]
  - URINARY TRACT INFECTION [None]
